APPROVED DRUG PRODUCT: MONTELUKAST SODIUM
Active Ingredient: MONTELUKAST SODIUM
Strength: EQ 4MG BASE
Dosage Form/Route: TABLET, CHEWABLE;ORAL
Application: A205107 | Product #001 | TE Code: AB
Applicant: AMNEAL PHARMACEUTICALS OF NEW YORK LLC
Approved: Sep 4, 2020 | RLD: No | RS: No | Type: RX